FAERS Safety Report 6233937-1 (Version None)
Quarter: 2009Q2

REPORT INFORMATION
  Report Type: 
  Country: None (occurrence: None)
  Receive Date: 20090618
  Receipt Date: 20090609
  Transmission Date: 20091009
  Serious: No
  Sender: FDA-Public Use
  Company Number: US-JNJFOC-20090603527

PATIENT
  Sex: Male
  Weight: 129.28 kg

DRUGS (2)
  1. FENTANYL TRANSDERMAL SYSTEM [Suspect]
     Indication: BACK PAIN
     Route: 062
  2. MANY OTHER UNSPECIFIED MEDICATIONS [Concomitant]

REACTIONS (5)
  - ANXIETY [None]
  - DRUG DOSE OMISSION [None]
  - DYSPNOEA [None]
  - PRODUCT QUALITY ISSUE [None]
  - WRONG TECHNIQUE IN DRUG USAGE PROCESS [None]
